FAERS Safety Report 8963006 (Version 2)
Quarter: 2013Q2

REPORT INFORMATION
  Report Type: Spontaneous
  Country: GB (occurrence: None)
  Receive Date: 20121205
  Receipt Date: 20130508
  Transmission Date: 20140414
  Serious: Yes (Other)
  Sender: FDA-Public Use
  Company Number: 2012P1065571

PATIENT
  Age: 58 Year
  Sex: Female

DRUGS (2)
  1. AMLODIPINE [Suspect]
  2. BENDROFLUAZIDE [Concomitant]

REACTIONS (1)
  - Linear IgA disease [None]
